FAERS Safety Report 23447491 (Version 1)
Quarter: 2024Q1

REPORT INFORMATION
  Report Type: Spontaneous
  Country: AU (occurrence: AU)
  Receive Date: 20240126
  Receipt Date: 20240126
  Transmission Date: 20240409
  Serious: Yes (Other)
  Sender: FDA-Public Use
  Company Number: AU-TEVA-VS-3148859

PATIENT
  Age: 48 Year
  Sex: Female

DRUGS (5)
  1. IMATINIB [Suspect]
     Active Substance: IMATINIB
     Indication: Product used for unknown indication
     Route: 065
  2. ASCIMINIB [Suspect]
     Active Substance: ASCIMINIB
     Indication: Product used for unknown indication
     Route: 065
  3. NILOTINIB [Suspect]
     Active Substance: NILOTINIB
     Indication: Product used for unknown indication
     Route: 065
  4. PONATINIB [Suspect]
     Active Substance: PONATINIB
     Indication: Product used for unknown indication
     Route: 065
  5. DASATINIB [Suspect]
     Active Substance: DASATINIB
     Indication: Product used for unknown indication
     Route: 065

REACTIONS (10)
  - Acute myocardial infarction [Unknown]
  - Arrhythmia [Unknown]
  - Cerebral vasoconstriction [Unknown]
  - Drug intolerance [Unknown]
  - Lipase increased [Unknown]
  - Pancreatitis [Unknown]
  - Supraventricular tachycardia [Unknown]
  - Transient ischaemic attack [Unknown]
  - Treatment failure [Unknown]
  - Treatment noncompliance [Unknown]
